FAERS Safety Report 10410015 (Version 2)
Quarter: 2014Q3

REPORT INFORMATION
  Report Type: Spontaneous
  Country: AU (occurrence: None)
  Receive Date: 20140703
  Receipt Date: 20140709
  Transmission Date: 20150326
  Serious: Yes (Other)
  Sender: FDA-Public Use
  Company Number: AUR-APL-2014-06156

PATIENT
  Age: 42 Year
  Sex: Female

DRUGS (3)
  1. BLACKMORES PREGNANCY + BREAST-FEEDING [Suspect]
     Active Substance: FISH OIL\MINERALS\VITAMINS
     Indication: PRODUCT USED FOR UNKNOWN INDICATION
  2. QUETIAPINE [Suspect]
     Active Substance: QUETIAPINE
     Indication: PRODUCT USED FOR UNKNOWN INDICATION
     Route: 048
  3. CALCIUM (CALCIUM) [Suspect]
     Active Substance: CALCIUM
     Indication: PRODUCT USED FOR UNKNOWN INDICATION

REACTIONS (6)
  - Gestational diabetes [None]
  - Premature delivery [None]
  - Premature rupture of membranes [None]
  - Cervical incompetence [None]
  - Maternal exposure during pregnancy [None]
  - Exposure during pregnancy [None]

NARRATIVE: CASE EVENT DATE: 20130411
